FAERS Safety Report 20407113 (Version 6)
Quarter: 2022Q2

REPORT INFORMATION
  Report Type: Report from Study
  Country: US (occurrence: US)
  Receive Date: 20220131
  Receipt Date: 20220616
  Transmission Date: 20220721
  Serious: Yes (Hospitalization, Other)
  Sender: FDA-Public Use
  Company Number: US-TAKEDA-2022TUS006287

PATIENT
  Age: 41 Year
  Sex: Male

DRUGS (8)
  1. TEDUGLUTIDE [Suspect]
     Active Substance: TEDUGLUTIDE
     Indication: Short-bowel syndrome
     Dosage: 4.54 MILLIGRAM, QD
     Route: 058
     Dates: start: 20211130
  2. TEDUGLUTIDE [Suspect]
     Active Substance: TEDUGLUTIDE
     Indication: Short-bowel syndrome
     Dosage: 4.54 MILLIGRAM, QD
     Route: 058
     Dates: start: 20211130
  3. TEDUGLUTIDE [Suspect]
     Active Substance: TEDUGLUTIDE
     Indication: Short-bowel syndrome
     Dosage: 4.54 MILLIGRAM, QD
     Route: 058
     Dates: start: 20211130
  4. TEDUGLUTIDE [Suspect]
     Active Substance: TEDUGLUTIDE
     Indication: Short-bowel syndrome
     Dosage: 4.54 MILLIGRAM, QD
     Route: 058
     Dates: start: 20211130
  5. TEDUGLUTIDE [Suspect]
     Active Substance: TEDUGLUTIDE
     Indication: Malabsorption
     Dosage: 4.54 MILLIGRAM, QD
     Route: 058
     Dates: start: 202111
  6. TEDUGLUTIDE [Suspect]
     Active Substance: TEDUGLUTIDE
     Indication: Malabsorption
     Dosage: 4.54 MILLIGRAM, QD
     Route: 058
     Dates: start: 202111
  7. TEDUGLUTIDE [Suspect]
     Active Substance: TEDUGLUTIDE
     Indication: Malabsorption
     Dosage: 4.54 MILLIGRAM, QD
     Route: 058
     Dates: start: 202111
  8. TEDUGLUTIDE [Suspect]
     Active Substance: TEDUGLUTIDE
     Indication: Malabsorption
     Dosage: 4.54 MILLIGRAM, QD
     Route: 058
     Dates: start: 202111

REACTIONS (5)
  - Sepsis [Unknown]
  - Spinal cord infection [Unknown]
  - Vascular device infection [Unknown]
  - Hospitalisation [Unknown]
  - Therapy interrupted [Unknown]

NARRATIVE: CASE EVENT DATE: 20220125
